FAERS Safety Report 6297808-7 (Version None)
Quarter: 2009Q3

REPORT INFORMATION
  Report Type: 
  Country: None (occurrence: None)
  Receive Date: 20090805
  Receipt Date: 20090724
  Transmission Date: 20100115
  Serious: Yes (Death)
  Sender: FDA-Public Use
  Company Number: US-PFIZER INC-2009246020

PATIENT
  Weight: 91 kg

DRUGS (10)
  1. ARIMIDEX [Suspect]
     Indication: BREAST CANCER
     Dosage: 1 MG, 1X/DAY
     Route: 048
     Dates: start: 20060118
  2. NORVASC [Suspect]
     Dosage: UNK
  3. GLIBENCLAMIDE [Suspect]
     Dosage: UNK
  4. METFORMIN HCL [Suspect]
     Dosage: UNK
  5. HYDROCHLOROTHIAZIDE [Suspect]
     Dosage: UNK
  6. ASPIRIN [Suspect]
     Dosage: UNK
  7. CALCIUM WITH VITAMIN D [Suspect]
     Dosage: UNK
  8. COZAAR [Suspect]
     Dosage: UNK
  9. SYNTHROID [Suspect]
     Dosage: UNK
  10. BONIVA [Suspect]
     Dosage: UNK

REACTIONS (1)
  - MYOCARDIAL INFARCTION [None]
